FAERS Safety Report 8267856-6 (Version None)
Quarter: 2012Q2

REPORT INFORMATION
  Report Type: 
  Country: None (occurrence: None)
  Receive Date: 20120405
  Receipt Date: 20120405
  Transmission Date: 20120825
  Serious: Yes (Hospitalization)
  Sender: FDA-Public Use
  Company Number: None

PATIENT
  Age: 40 Year
  Sex: Female
  Weight: 82.5 kg

DRUGS (4)
  1. LYRICA [Suspect]
     Indication: FIBROMYALGIA
     Dosage: 450MG QHS PO CHRONIC
     Route: 048
  2. FLEXERIL [Suspect]
     Indication: FIBROMYALGIA
     Dosage: TID PRN
  3. OXYCODONE HCL [Suspect]
  4. OPANA ER [Suspect]
     Indication: FIBROMYALGIA
     Dosage: 40MG Q12HRS PO CHRONIC W/ RECENT DOSE INCREASE
     Route: 048

REACTIONS (3)
  - SUICIDAL IDEATION [None]
  - PAIN [None]
  - FIBROMYALGIA [None]
